FAERS Safety Report 18745504 (Version 2)
Quarter: 2021Q1

REPORT INFORMATION
  Report Type: Spontaneous
  Country: US (occurrence: US)
  Receive Date: 20210115
  Receipt Date: 20210115
  Transmission Date: 20210419
  Serious: Yes (Other)
  Sender: FDA-Public Use
  Company Number: US-ENDO PHARMACEUTICALS INC-2020-007965

PATIENT
  Age: 36 Year
  Sex: Male

DRUGS (4)
  1. XIAFLEX [Suspect]
     Active Substance: COLLAGENASE CLOSTRIDIUM HISTOLYTICUM
     Dosage: UNKNOWN (CYCLE 2, INJECTION 1)
     Route: 065
     Dates: start: 20201208
  2. XIAFLEX [Suspect]
     Active Substance: COLLAGENASE CLOSTRIDIUM HISTOLYTICUM
     Indication: PEYRONIE^S DISEASE
     Dosage: UNKNOWN (CYCLE 2, INJECTION 2)
     Route: 065
     Dates: start: 20201210
  3. XIAFLEX [Suspect]
     Active Substance: COLLAGENASE CLOSTRIDIUM HISTOLYTICUM
     Dosage: UNKNOWN (CYCLE 1, INJECTION 1)
     Route: 065
  4. XIAFLEX [Suspect]
     Active Substance: COLLAGENASE CLOSTRIDIUM HISTOLYTICUM
     Dosage: UNKNOWN (CYCLE 1, INJECTION 2)
     Route: 065

REACTIONS (6)
  - Contusion [Unknown]
  - Penile swelling [Recovering/Resolving]
  - Injection site pain [Unknown]
  - Fracture of penis [Unknown]
  - Penile pain [Unknown]
  - Swelling [Unknown]

NARRATIVE: CASE EVENT DATE: 20200105
